FAERS Safety Report 5036623-9 (Version None)
Quarter: 2006Q2

REPORT INFORMATION
  Report Type: 
  Country: None (occurrence: None)
  Receive Date: 20060531
  Receipt Date: 20060412
  Transmission Date: 20061013
  Serious: No
  Sender: FDA-Public Use
  Company Number: PHEH2006US04868

PATIENT
  Age: 13 Year
  Sex: Male

DRUGS (2)
  1. EXJADE [Suspect]
     Indication: BLOOD IRON INCREASED
     Dosage: SEE IMAGE
     Route: 048
     Dates: start: 20060304
  2. EXJADE [Suspect]
     Indication: BLOOD IRON DECREASED
     Dosage: 500 MG, QD, ORAL
     Route: 048

REACTIONS (3)
  - NEUTROPENIA [None]
  - NEUTROPHIL COUNT DECREASED [None]
  - WHITE BLOOD CELL COUNT DECREASED [None]
